FAERS Safety Report 8833843 (Version 1)
Quarter: 2012Q4

REPORT INFORMATION
  Report Type: 
  Country: US (occurrence: None)
  Receive Date: 20121010
  Receipt Date: 20121010
  Transmission Date: 20130627
  Serious: Yes (Hospitalization)
  Sender: FDA-Public Use
  Company Number: None

PATIENT
  Sex: Male
  Weight: 78.8 kg

DRUGS (1)
  1. CETUXIMAB [Suspect]

REACTIONS (10)
  - Oesophagitis [None]
  - Radiation skin injury [None]
  - Radiation mucositis [None]
  - Skin infection [None]
  - Dehydration [None]
  - Toxicity to various agents [None]
  - Oral candidiasis [None]
  - Erythema [None]
  - Skin exfoliation [None]
  - Lymphocyte count increased [None]
